FAERS Safety Report 25001217 (Version 1)
Quarter: 2025Q1

REPORT INFORMATION
  Report Type: Spontaneous
  Country: US (occurrence: US)
  Receive Date: 20250223
  Receipt Date: 20250223
  Transmission Date: 20250409
  Serious: No
  Sender: SANOFI AVENTIS
  Company Number: US-SA-2025SA050601

PATIENT
  Sex: Male
  Weight: 108.64 kg

DRUGS (16)
  1. FABRAZYME [Suspect]
     Active Substance: AGALSIDASE BETA
     Indication: Fabry^s disease
     Dosage: 105 MG, QOW
     Route: 042
     Dates: start: 20180829
  2. EPINEPHRINE [Concomitant]
     Active Substance: EPINEPHRINE
  3. SODIUM CHLORIDE [Concomitant]
     Active Substance: SODIUM CHLORIDE
  4. STERILE WATER [Concomitant]
     Active Substance: WATER
  5. CHONDROITIN SULFATE (BOVINE)\GLUCOSAMINE HYDROCHLORIDE [Concomitant]
     Active Substance: CHONDROITIN SULFATE (BOVINE)\GLUCOSAMINE HYDROCHLORIDE
  6. ZYRTEC [Concomitant]
     Active Substance: CETIRIZINE HYDROCHLORIDE
  7. IBUPROFEN [Concomitant]
     Active Substance: IBUPROFEN
  8. SODIUM CHLORIDE [Concomitant]
     Active Substance: SODIUM CHLORIDE
  9. COQ [Concomitant]
  10. GARLIC [Concomitant]
     Active Substance: GARLIC
  11. VITAMINS [Concomitant]
     Active Substance: VITAMINS
  12. LORATADINE [Concomitant]
     Active Substance: LORATADINE
  13. LISINOPRIL [Concomitant]
     Active Substance: LISINOPRIL
  14. HERBALS\TURMERIC [Concomitant]
     Active Substance: HERBALS\TURMERIC
  15. DIPHENHYDRAMINE HYDROCHLORIDE [Concomitant]
     Active Substance: DIPHENHYDRAMINE HYDROCHLORIDE
  16. MINERALS\VITAMINS [Concomitant]
     Active Substance: MINERALS\VITAMINS

REACTIONS (2)
  - Joint dislocation [Unknown]
  - Pain in extremity [Unknown]
